FAERS Safety Report 4704243-9 (Version None)
Quarter: 2005Q2

REPORT INFORMATION
  Report Type: 
  Country: None (occurrence: None)
  Receive Date: 20050628
  Receipt Date: 20050621
  Transmission Date: 20051028
  Serious: Yes (Death, Hospitalization)
  Sender: FDA-Public Use
  Company Number: WAES 0506USA02975

PATIENT
  Age: 70 Year
  Sex: Male

DRUGS (8)
  1. DECADRON [Suspect]
  2. WAFR BLINDED THERAPY [Suspect]
     Indication: GLIOBLASTOMA MULTIFORME
     Dosage: PO
     Route: 048
     Dates: start: 20041215, end: 20041219
  3. KEPPRA [Concomitant]
  4. PEPCID [Concomitant]
  5. DILTIAZEM HYDROCHLORIDE [Concomitant]
  6. GLIPIZIDE [Concomitant]
  7. ISOSORBIDE [Concomitant]
  8. METOPROLOL [Concomitant]

REACTIONS (11)
  - ASTHENIA [None]
  - BACK PAIN [None]
  - FALL [None]
  - HYPERGLYCAEMIA [None]
  - INTERVERTEBRAL DISC SPACE NARROWING [None]
  - MYOPATHY STEROID [None]
  - OSTEOPENIA [None]
  - OSTEOPOROSIS [None]
  - PERSONALITY CHANGE [None]
  - PNEUMONIA ASPIRATION [None]
  - SPINAL DISORDER [None]
